FAERS Safety Report 7530735-3 (Version None)
Quarter: 2011Q2

REPORT INFORMATION
  Report Type: 
  Country: None (occurrence: None)
  Receive Date: 20110607
  Receipt Date: 20110603
  Transmission Date: 20111010
  Serious: Yes (Death, Hospitalization, Other)
  Sender: FDA-Public Use
  Company Number: US-AMGEN-USASP2011026617

PATIENT
  Age: 73 Year
  Sex: Male
  Weight: 40.363 kg

DRUGS (7)
  1. NPLATE [Suspect]
  2. PLATELETS [Concomitant]
  3. NPLATE [Suspect]
  4. NPLATE [Suspect]
  5. NPLATE [Suspect]
     Indication: IDIOPATHIC THROMBOCYTOPENIC PURPURA
     Dosage: 801 A?G, QWK
     Route: 058
     Dates: start: 20101021, end: 20101230
  6. NPLATE [Suspect]
  7. RED BLOOD CELLS [Concomitant]

REACTIONS (8)
  - HAEMORRHAGE INTRACRANIAL [None]
  - BRAIN HERNIATION [None]
  - RESPIRATORY DISTRESS [None]
  - MENTAL STATUS CHANGES [None]
  - DRUG INEFFECTIVE [None]
  - ANAEMIA [None]
  - HYPOTENSION [None]
  - PANCYTOPENIA [None]
